FAERS Safety Report 6308945-2 (Version None)
Quarter: 2009Q3

REPORT INFORMATION
  Report Type: 
  Country: None (occurrence: None)
  Receive Date: 20090813
  Receipt Date: 20090506
  Transmission Date: 20100115
  Serious: No
  Sender: FDA-Public Use
  Company Number: US-ALLERGAN-0906277US

PATIENT
  Age: 69 Year
  Sex: Female

DRUGS (1)
  1. COMBIGAN [Suspect]
     Indication: GLAUCOMA
     Dosage: UNK, BID
     Route: 047
     Dates: start: 20090421, end: 20090504

REACTIONS (4)
  - EYE IRRITATION [None]
  - EYE PAIN [None]
  - EYELID OEDEMA [None]
  - OCULAR HYPERAEMIA [None]
